FAERS Safety Report 13884856 (Version 1)
Quarter: 2017Q3

REPORT INFORMATION
  Report Type: Spontaneous
  Country: DE (occurrence: DE)
  Receive Date: 20170821
  Receipt Date: 20170821
  Transmission Date: 20171127
  Serious: Yes (Hospitalization)
  Sender: FDA-Public Use
  Company Number: DE-009507513-1708DEU007880

PATIENT
  Age: 58 Year
  Sex: Female
  Weight: 65 kg

DRUGS (1)
  1. ALENDRONATE SODIUM. [Suspect]
     Active Substance: ALENDRONATE SODIUM
     Dosage: DAILY DOSE: 70 MG MILIGRAM(S) EVERY WEEKS^ (70 MG MILIGRAM(S), 1 IN 1 WEEK)
     Route: 048
     Dates: start: 201608, end: 201708

REACTIONS (1)
  - Pancreatitis acute [Unknown]

NARRATIVE: CASE EVENT DATE: 20170801
